FAERS Safety Report 16512758 (Version 1)
Quarter: 2019Q3

REPORT INFORMATION
  Report Type: Spontaneous
  Country: GB (occurrence: GB)
  Receive Date: 20190702
  Receipt Date: 20190702
  Transmission Date: 20191004
  Serious: Yes (Other)
  Sender: FDA-Public Use
  Company Number: GB-MYLANLABS-2019M1060186

PATIENT
  Sex: Male

DRUGS (1)
  1. EVEROLIMUS. [Suspect]
     Active Substance: EVEROLIMUS
     Indication: PRODUCT USED FOR UNKNOWN INDICATION
     Dosage: UNK
     Route: 048

REACTIONS (8)
  - Gait disturbance [Recovering/Resolving]
  - Stomatitis [Not Recovered/Not Resolved]
  - Fatigue [Not Recovered/Not Resolved]
  - Polyuria [Not Recovered/Not Resolved]
  - Spinal cord injury [Recovering/Resolving]
  - Encephalitis [Recovering/Resolving]
  - Astrocytoma, low grade [Recovering/Resolving]
  - Acne [Recovered/Resolved]
